FAERS Safety Report 11248635 (Version 1)
Quarter: 2015Q3

REPORT INFORMATION
  Report Type: Spontaneous
  Country: US (occurrence: US)
  Receive Date: 20150708
  Receipt Date: 20150708
  Transmission Date: 20151125
  Serious: No
  Sender: FDA-Public Use
  Company Number: US-ELI_LILLY_AND_COMPANY-US201001000808

PATIENT
  Age: 49 Year
  Sex: Female

DRUGS (1)
  1. PROZAC [Suspect]
     Active Substance: FLUOXETINE HYDROCHLORIDE
     Indication: DEPRESSION
     Dosage: 40 MG, 2/D
     Route: 065
     Dates: start: 200909

REACTIONS (4)
  - Rash generalised [Unknown]
  - Hypersensitivity [Unknown]
  - Rash macular [Unknown]
  - Pruritus [Unknown]

NARRATIVE: CASE EVENT DATE: 200909
